FAERS Safety Report 10343909 (Version 3)
Quarter: 2014Q3

REPORT INFORMATION
  Report Type: Spontaneous
  Country: IT (occurrence: IT)
  Receive Date: 20140727
  Receipt Date: 20140806
  Transmission Date: 20150326
  Serious: Yes (Hospitalization)
  Sender: FDA-Public Use
  Company Number: PHHY2014IT090677

PATIENT
  Age: 72 Year
  Sex: Female

DRUGS (6)
  1. CALPLUSD3 [Concomitant]
     Dosage: UNK
     Route: 048
  2. PANTOPRAZOLE [Concomitant]
     Active Substance: PANTOPRAZOLE SODIUM
     Dosage: 20 MG
     Route: 048
  3. GAVISCON [Concomitant]
     Active Substance: ALUMINUM HYDROXIDE\MAGNESIUM CARBONATE
     Dosage: UNK
     Route: 048
  4. CARDIOASPIRIN [Concomitant]
     Active Substance: ASPIRIN
     Dosage: UNK
  5. CLOZAPINE. [Suspect]
     Active Substance: CLOZAPINE
     Indication: MEDICATION ERROR
     Dosage: 100 MG, ONCE/SINGLE
     Route: 048
     Dates: start: 20140611, end: 20140611
  6. DIFOSFONAL [Concomitant]
     Active Substance: CLODRONATE DISODIUM
     Dosage: UNK
     Route: 030

REACTIONS (5)
  - Hyperhidrosis [Recovering/Resolving]
  - Medication error [Recovering/Resolving]
  - Loss of consciousness [Recovering/Resolving]
  - Aphasia [Recovering/Resolving]
  - Somnolence [Recovering/Resolving]

NARRATIVE: CASE EVENT DATE: 20140611
